FAERS Safety Report 11441349 (Version 1)
Quarter: 2015Q3

REPORT INFORMATION
  Report Type: Spontaneous
  Country: None (occurrence: US)
  Receive Date: 20150821
  Receipt Date: 20150821
  Transmission Date: 20151125
  Serious: No
  Sender: FDA-Public Use
  Company Number: US-ELI_LILLY_AND_COMPANY-US200806000940

PATIENT
  Sex: Female

DRUGS (2)
  1. CYMBALTA [Suspect]
     Active Substance: DULOXETINE HYDROCHLORIDE
     Indication: MAJOR DEPRESSION
     Dosage: 80 MG, UNK
  2. CYMBALTA [Suspect]
     Active Substance: DULOXETINE HYDROCHLORIDE
     Dosage: 120 MG, UNK
     Dates: start: 2008

REACTIONS (8)
  - Sinusitis [Unknown]
  - Depression [Unknown]
  - Fatigue [Unknown]
  - Activities of daily living impaired [Unknown]
  - Emotional disorder [Unknown]
  - Rhinalgia [Unknown]
  - Crying [Unknown]
  - Headache [Unknown]

NARRATIVE: CASE EVENT DATE: 2008
